FAERS Safety Report 21298946 (Version 2)
Quarter: 2022Q3

REPORT INFORMATION
  Report Type: Report from Study
  Country: GR (occurrence: GR)
  Receive Date: 20220906
  Receipt Date: 20220914
  Transmission Date: 20221026
  Serious: Yes (Death, Hospitalization)
  Sender: FDA-Public Use
  Company Number: GR-ELI_LILLY_AND_COMPANY-GR202208005207

PATIENT
  Age: 84 Year
  Sex: Female

DRUGS (5)
  1. TERIPARATIDE [Suspect]
     Active Substance: TERIPARATIDE
     Indication: Osteoporosis
     Dosage: 20 UG, DAILY
     Route: 058
     Dates: start: 20220720, end: 20220728
  2. CALCIUM [Concomitant]
     Active Substance: CALCIUM
     Indication: Osteoporosis
     Dosage: 2 TABLETS, DAILY
  3. MAGNESIUM [Concomitant]
     Active Substance: MAGNESIUM
     Indication: Magnesium deficiency
     Dosage: 2 AMP DAILY
  4. ALLOPURINOL [Concomitant]
     Active Substance: ALLOPURINOL
     Indication: Blood uric acid abnormal
     Dosage: 1 TABLET, DAILY
  5. HYDROXYUREA [Concomitant]
     Active Substance: HYDROXYUREA
     Indication: Myelofibrosis
     Dosage: 4 AMPULE, WEEKLY (1/W)

REACTIONS (4)
  - Respiratory failure [Fatal]
  - Myelofibrosis [Fatal]
  - Haematocrit decreased [Unknown]
  - Mean arterial pressure decreased [Unknown]

NARRATIVE: CASE EVENT DATE: 20220701
